FAERS Safety Report 8123338-3 (Version None)
Quarter: 2012Q1

REPORT INFORMATION
  Report Type: 
  Country: None (occurrence: None)
  Receive Date: 20120208
  Receipt Date: 20120126
  Transmission Date: 20120608
  Serious: Yes (Hospitalization)
  Sender: FDA-Public Use
  Company Number: JP-AMGEN-KDC443096

PATIENT
  Age: 74 Year
  Sex: Male
  Weight: 62 kg

DRUGS (13)
  1. PLAVIX [Concomitant]
     Route: 048
  2. FAMOTIDINE [Concomitant]
     Indication: GASTRIC ULCER
     Route: 048
  3. NORVASC [Concomitant]
     Route: 048
  4. ASPIRIN [Concomitant]
     Route: 048
  5. PANITUMUMAB [Suspect]
     Indication: COLORECTAL CANCER
     Dosage: 6 MG/KG, Q2WK
     Route: 041
     Dates: start: 20100729, end: 20100909
  6. GASMOTIN [Concomitant]
     Indication: GASTRITIS
     Route: 048
  7. FENTANYL-100 [Concomitant]
     Dosage: UNK UNK, UNK
     Route: 062
  8. NIKORANMART [Concomitant]
     Indication: ANGINA PECTORIS
     Dosage: UNK UNK, UNK
     Route: 048
  9. LASIX [Concomitant]
     Route: 048
  10. MUCOSTA [Concomitant]
     Indication: GASTRIC ULCER
     Route: 048
  11. DIOVAN [Concomitant]
     Route: 048
  12. MECOBALAMIN [Concomitant]
     Indication: NEUROPATHY PERIPHERAL
     Dosage: UNK UNK, UNK
     Route: 048
  13. LIVALO [Concomitant]
     Route: 048

REACTIONS (5)
  - DERMATITIS [None]
  - PARONYCHIA [None]
  - VERTIGO [None]
  - TREMOR [None]
  - CHILLS [None]
